FAERS Safety Report 7023514-7 (Version None)
Quarter: 2010Q3

REPORT INFORMATION
  Report Type: 
  Country: None (occurrence: None)
  Receive Date: 20100929
  Receipt Date: 20100929
  Transmission Date: 20110219
  Serious: Yes (Hospitalization)
  Sender: FDA-Public Use
  Company Number: None

PATIENT
  Age: 59 Year
  Sex: Male
  Weight: 59.9 kg

DRUGS (1)
  1. OXYCODONE AND ACETAMINOPHEN [Suspect]
     Indication: OVERDOSE
     Dosage: 19 TAB ONCE PO
     Route: 048
     Dates: start: 20100501, end: 20100501

REACTIONS (2)
  - INTENTIONAL OVERDOSE [None]
  - SEDATION [None]
